FAERS Safety Report 16473015 (Version 1)
Quarter: 2019Q2

REPORT INFORMATION
  Report Type: Spontaneous
  Country: US (occurrence: US)
  Receive Date: 20190625
  Receipt Date: 20190625
  Transmission Date: 20190711
  Serious: Yes (Hospitalization, Other)
  Sender: FDA-Public Use
  Company Number: US-AUROBINDO-AUR-APL-2019-037289

PATIENT

DRUGS (2)
  1. ACETAMINOPHEN 160MG/5ML [Suspect]
     Active Substance: ACETAMINOPHEN
     Indication: SUICIDE ATTEMPT
     Route: 064
  2. ACETYLSALICYLIC ACID [Suspect]
     Active Substance: ASPIRIN
     Indication: SUICIDE ATTEMPT
     Route: 064

REACTIONS (10)
  - Metabolic acidosis [Recovered/Resolved]
  - Hepatotoxicity [Recovered/Resolved]
  - Premature baby [Unknown]
  - Neonatal respiratory distress [Unknown]
  - Foetal heart rate deceleration abnormality [Unknown]
  - Foetal acidosis [Recovered/Resolved]
  - Tachycardia foetal [Unknown]
  - Analgesic drug level increased [Unknown]
  - Transaminases increased [Recovered/Resolved]
  - Foetal exposure during pregnancy [Unknown]
